FAERS Safety Report 15675671 (Version 2)
Quarter: 2019Q1

REPORT INFORMATION
  Report Type: Spontaneous
  Country: GB (occurrence: GB)
  Receive Date: 20181130
  Receipt Date: 20190112
  Transmission Date: 20190417
  Serious: Yes (Life-Threatening, Hospitalization)
  Sender: FDA-Public Use
  Company Number: GB-TEVA-2018-GB-980926

PATIENT
  Age: 54 Year
  Sex: Female
  Weight: 60 kg

DRUGS (2)
  1. ACICLOVIR [Concomitant]
     Active Substance: ACYCLOVIR
     Route: 065
  2. CLONIDINE. [Suspect]
     Active Substance: CLONIDINE
     Indication: MENOPAUSAL SYMPTOMS
     Dosage: 100 MICROGRAM DAILY;
     Route: 048
     Dates: start: 20180720, end: 20180731

REACTIONS (1)
  - Hyponatraemic seizure [Recovered/Resolved with Sequelae]

NARRATIVE: CASE EVENT DATE: 20180731
